FAERS Safety Report 23548784 (Version 2)
Quarter: 2024Q1

REPORT INFORMATION
  Report Type: Spontaneous
  Country: JP (occurrence: JP)
  Receive Date: 20240221
  Receipt Date: 20240228
  Transmission Date: 20240410
  Serious: Yes (Other)
  Sender: FDA-Public Use
  Company Number: JP-PFIZER INC-PV202400023093

PATIENT
  Age: 82 Year
  Sex: Male

DRUGS (3)
  1. CISPLATIN [Suspect]
     Active Substance: CISPLATIN
     Indication: HER2 positive gastric cancer
     Dosage: 8 COURSES OF TRIPLET CHEMOTHERAPY
  2. CAPECITABINE [Concomitant]
     Active Substance: CAPECITABINE
     Indication: HER2 positive gastric cancer
     Dosage: 8 COURSES OF TRIPLET CHEMOTHERAPY
  3. TRASTUZUMAB [Concomitant]
     Active Substance: TRASTUZUMAB
     Indication: HER2 positive gastric cancer
     Dosage: 8 COURSES OF TRIPLET CHEMOTHERAPY

REACTIONS (3)
  - Renal impairment [Unknown]
  - Hypophagia [Unknown]
  - Off label use [Unknown]
